FAERS Safety Report 6096183-0 (Version None)
Quarter: 2009Q1

REPORT INFORMATION
  Report Type: 
  Country: None (occurrence: None)
  Receive Date: 20090225
  Receipt Date: 20090225
  Transmission Date: 20090719
  Serious: No
  Sender: FDA-Public Use
  Company Number: None

PATIENT
  Sex: Female
  Weight: 56.6996 kg

DRUGS (1)
  1. CLINDAMYCIN HCL [Suspect]
     Indication: POST PROCEDURAL INFECTION
     Dosage: 300 MG 4/DAY
     Dates: start: 20090202, end: 20090205

REACTIONS (2)
  - DYSPEPSIA [None]
  - PAIN [None]
